FAERS Safety Report 7153946-8 (Version None)
Quarter: 2010Q4

REPORT INFORMATION
  Report Type: 
  Country: None (occurrence: None)
  Receive Date: 20101213
  Receipt Date: 20101207
  Transmission Date: 20110411
  Serious: Yes (Congenital Anomaly, Other)
  Sender: FDA-Public Use
  Company Number: US-PFIZER INC-2010128181

PATIENT
  Sex: Male
  Weight: 3.92 kg

DRUGS (6)
  1. ZOLOFT [Suspect]
     Indication: DEPRESSION
     Dosage: 50 MG, 1X/DAY
     Route: 064
     Dates: start: 20021007
  2. ZOLOFT [Suspect]
     Indication: ANXIETY
     Dosage: 100 MG, UNK
     Route: 064
     Dates: start: 20040920
  3. ZOLOFT [Suspect]
     Indication: OBSESSIVE-COMPULSIVE DISORDER
     Dosage: 100 MG, 1X/DAY
     Route: 064
     Dates: start: 20051121
  4. ZOLOFT [Suspect]
     Indication: PANIC ATTACK
     Dosage: 25 MG, UNK
     Dates: start: 20070312
  5. ZOLOFT [Suspect]
     Dosage: 200 MG, TWO TABLETS ONCE DAILY
     Route: 064
     Dates: start: 20080618
  6. KEFLEX [Concomitant]
     Dosage: TWO CAPSULES BY ORAL ROUTE EVERY 12 HR
     Route: 064

REACTIONS (11)
  - CARDIOMEGALY [None]
  - CONGENITAL PULMONARY VALVE ATRESIA [None]
  - DRUG EXPOSURE DURING PREGNANCY [None]
  - EAR INFECTION [None]
  - KYPHOSIS CONGENITAL [None]
  - LUNG HYPERINFLATION [None]
  - OTITIS MEDIA [None]
  - RESPIRATORY TRACT INFECTION VIRAL [None]
  - UPPER RESPIRATORY TRACT INFECTION [None]
  - VENTRICULAR SEPTAL DEFECT [None]
  - VIRAL RASH [None]
